FAERS Safety Report 16684537 (Version 3)
Quarter: 2019Q3

REPORT INFORMATION
  Report Type: Spontaneous
  Country: US (occurrence: US)
  Receive Date: 20190808
  Receipt Date: 20190822
  Transmission Date: 20191004
  Serious: No
  Sender: FDA-Public Use
  Company Number: US-PFIZER INC-2019079230

PATIENT
  Age: 78 Year
  Sex: Male
  Weight: 63.49 kg

DRUGS (6)
  1. CELEXA [CELECOXIB] [Concomitant]
     Active Substance: CELECOXIB
     Indication: AFFECTIVE DISORDER
     Dosage: 40 MG, 1X/DAY
     Route: 048
  2. LYRICA [Suspect]
     Active Substance: PREGABALIN
     Dosage: 3 DF, DAILY(100MG CAPSULE)
  3. MOBIC [Concomitant]
     Active Substance: MELOXICAM
     Dosage: 7 MG, 1X/DAY
     Route: 048
  4. LYRICA [Suspect]
     Active Substance: PREGABALIN
     Indication: RESTLESS LEGS SYNDROME
     Dosage: 8 DF, (50MG CAPSULES) TO MAKE 400 MG DAILY
  5. LYRICA [Suspect]
     Active Substance: PREGABALIN
     Dosage: 1 DF, 4X/DAY , 1 CAPSULE 100MG 4X/DAY
     Route: 048
  6. MOBIC [Concomitant]
     Active Substance: MELOXICAM
     Indication: HEADACHE
     Dosage: 15 MG, DAILY

REACTIONS (3)
  - Product use in unapproved indication [Unknown]
  - Off label use [Unknown]
  - Intentional product misuse [Unknown]
